FAERS Safety Report 24042046 (Version 1)
Quarter: 2024Q3

REPORT INFORMATION
  Report Type: Spontaneous
  Country: US (occurrence: None)
  Receive Date: 20240701
  Receipt Date: 20240701
  Transmission Date: 20241016
  Serious: Yes (Other)
  Sender: Public
  Company Number: None

PATIENT
  Age: 67 Year
  Sex: Female
  Weight: 74.25 kg

DRUGS (6)
  1. ZETIA [Suspect]
     Active Substance: EZETIMIBE
     Indication: Product used for unknown indication
     Dates: start: 20240626
  2. LEVOTHYROXINE [Concomitant]
     Active Substance: LEVOTHYROXINE\LEVOTHYROXINE SODIUM
  3. VITAMIN D3 [Concomitant]
     Active Substance: CHOLECALCIFEROL
  4. LIPITOR [Concomitant]
     Active Substance: ATORVASTATIN CALCIUM
  5. PEPCID [Concomitant]
     Active Substance: FAMOTIDINE
  6. MAGNESIUM GLYCINATE [Concomitant]
     Active Substance: MAGNESIUM GLYCINATE

REACTIONS (2)
  - Upper respiratory tract infection [None]
  - Bronchitis [None]

NARRATIVE: CASE EVENT DATE: 20240628
